FAERS Safety Report 14274507 (Version 1)
Quarter: 2017Q4

REPORT INFORMATION
  Report Type: Spontaneous
  Country: DE (occurrence: DE)
  Receive Date: 20171212
  Receipt Date: 20171212
  Transmission Date: 20180321
  Serious: Yes (Other)
  Sender: FDA-Public Use
  Company Number: DE-AMGEN-DEUSP2017182367

PATIENT
  Age: 35 Year
  Sex: Female

DRUGS (1)
  1. XGEVA [Suspect]
     Active Substance: DENOSUMAB
     Indication: ANEURYSMAL BONE CYST
     Dosage: 60 MG, Q4WK
     Route: 065

REACTIONS (7)
  - Low turnover osteopathy [Unknown]
  - Neoplasm progression [Recovering/Resolving]
  - Vitamin D deficiency [Unknown]
  - Blood parathyroid hormone increased [Unknown]
  - Blood calcium decreased [Unknown]
  - Blood phosphorus decreased [Unknown]
  - Off label use [Unknown]
